FAERS Safety Report 25079827 (Version 1)
Quarter: 2025Q1

REPORT INFORMATION
  Report Type: Spontaneous
  Country: TR (occurrence: TR)
  Receive Date: 20250314
  Receipt Date: 20250314
  Transmission Date: 20250409
  Serious: Yes (Death, Hospitalization)
  Sender: AMGEN
  Company Number: TR-AMGEN-TURSP2025048924

PATIENT

DRUGS (3)
  1. ADALIMUMAB [Suspect]
     Active Substance: ADALIMUMAB
     Indication: Rheumatoid arthritis
     Route: 065
  2. ADALIMUMAB [Suspect]
     Active Substance: ADALIMUMAB
     Indication: Spondylitis
  3. ADALIMUMAB [Suspect]
     Active Substance: ADALIMUMAB
     Indication: Familial mediterranean fever

REACTIONS (8)
  - COVID-19 [Fatal]
  - Infection [Fatal]
  - Polyomavirus viraemia [Unknown]
  - Cytomegalovirus enteritis [Unknown]
  - Urinary tract infection bacterial [Unknown]
  - Pneumonia bacterial [Unknown]
  - Skin bacterial infection [Unknown]
  - Herpes zoster [Unknown]
